FAERS Safety Report 15724187 (Version 2)
Quarter: 2019Q1

REPORT INFORMATION
  Report Type: Spontaneous
  Country: JP (occurrence: JP)
  Receive Date: 20181214
  Receipt Date: 20190107
  Transmission Date: 20190417
  Serious: Yes (Hospitalization)
  Sender: FDA-Public Use
  Company Number: JP-FERRINGPH-2018FE07129

PATIENT

DRUGS (11)
  1. VALPROATE NA [Concomitant]
     Active Substance: VALPROATE SODIUM
     Dosage: 800 MG, UNK
  2. BROTIZOLAM [Concomitant]
     Active Substance: BROTIZOLAM
     Dosage: 0.5 MG, UNK
  3. LEVOTOMIN                          /00038602/ [Concomitant]
     Active Substance: LEVOMEPROMAZINE
     Dosage: 50 MG, UNK
  4. MAGMITT [Concomitant]
     Active Substance: MAGNESIUM OXIDE
     Dosage: 660 MG, UNK
  5. DESMOPRESSIN KYOWA [Suspect]
     Active Substance: DESMOPRESSIN
     Dosage: 5 ?G, DAILY (IN THE EVENING)
     Route: 045
     Dates: start: 20180816, end: 20181121
  6. TRICHLORMETHIAZIDE [Concomitant]
     Active Substance: TRICHLORMETHIAZIDE
     Dosage: 1.5 MG, UNK
  7. MINIRINMELT [Suspect]
     Active Substance: DESMOPRESSIN ACETATE
     Indication: NEPHROGENIC DIABETES INSIPIDUS
     Dosage: 60 ?G, 1 TIME DAILY AFTER DINNER
     Route: 048
     Dates: start: 20181122
  8. CALONAL [Concomitant]
     Active Substance: ACETAMINOPHEN
     Dosage: 800 MG, UNK
  9. RISPERIDONE. [Concomitant]
     Active Substance: RISPERIDONE
     Dosage: 4 MG, UNK
  10. ZOTEPINE [Concomitant]
     Active Substance: ZOTEPINE
     Dosage: 50 MG, UNK
  11. DESMOPRESSIN KYOWA [Suspect]
     Active Substance: DESMOPRESSIN
     Indication: NEPHROGENIC DIABETES INSIPIDUS
     Dosage: 5 ?G, UNK
     Route: 045

REACTIONS (3)
  - Gait disturbance [Unknown]
  - Product use in unapproved indication [Unknown]
  - Contraindicated product administered [Unknown]

NARRATIVE: CASE EVENT DATE: 20180816
